FAERS Safety Report 9423470 (Version 2)
Quarter: 2013Q3

REPORT INFORMATION
  Report Type: Spontaneous
  Country: FR (occurrence: FR)
  Receive Date: 20130726
  Receipt Date: 20130918
  Transmission Date: 20140515
  Serious: Yes (Other)
  Sender: FDA-Public Use
  Company Number: FR-ASTRAZENECA-2013SE54748

PATIENT
  Age: 34456 Day
  Sex: Male
  Weight: 85 kg

DRUGS (8)
  1. CASODEX [Suspect]
     Route: 048
  2. ENANTONE [Concomitant]
     Dosage: 30 MG INJECTION EVERY SIX MONTHS
  3. VASTEN [Concomitant]
     Route: 048
  4. ATACAND [Concomitant]
     Route: 048
  5. FLECAINE [Concomitant]
     Route: 048
  6. PREVISCAN [Concomitant]
     Route: 048
  7. NIFEDIPINE [Concomitant]
  8. TANAKAN [Concomitant]
     Route: 048

REACTIONS (10)
  - C-reactive protein increased [Recovered/Resolved]
  - Hepatic pain [Recovered/Resolved]
  - Transaminases increased [Recovered/Resolved]
  - Gamma-glutamyltransferase increased [Recovered/Resolved]
  - Blood bilirubin increased [Recovered/Resolved]
  - Decreased appetite [Recovered/Resolved]
  - Nausea [Recovered/Resolved]
  - Constipation [Recovered/Resolved]
  - Fatigue [Recovered/Resolved]
  - White blood cell count increased [Recovered/Resolved]
